FAERS Safety Report 4566503-4 (Version None)
Quarter: 2005Q1

REPORT INFORMATION
  Report Type: 
  Country: None (occurrence: None)
  Receive Date: 20050128
  Receipt Date: 20050121
  Transmission Date: 20050727
  Serious: Yes (Hospitalization, Disabling)
  Sender: FDA-Public Use
  Company Number: 210203

PATIENT
  Age: 43 Year
  Sex: Male
  Weight: 53 kg

DRUGS (14)
  1. XOLAIR [Suspect]
     Indication: ASTHMA
     Dosage: 375 MGQ2WM SUBCUTANEOUS
     Route: 058
     Dates: start: 20031230, end: 20040824
  2. SINGULAIR [Concomitant]
  3. PROVENTIL (ALBUTEROL SULFATE, ALBUTEROL) [Concomitant]
  4. FLOVENTIL (FLUTICASONE PROPIONATE) [Concomitant]
  5. TYLENOL #3 (UNITED STATES) (CODEINE PHOSPHATE, ACETAMINOPHEN) [Concomitant]
  6. LISINOPRIL [Concomitant]
  7. HYDROCHLOROTHIAZIDE [Concomitant]
  8. PROVENTIL (ALBUTEROL SULFATE, ALBUTEROL) [Concomitant]
  9. VANCOMYCIN HYDROCHLORIDE [Concomitant]
  10. ZOSYN (TAZOBACTAM SODIUM, PIPERACILLIN SODIUM) [Concomitant]
  11. NITROPASTE (NITROGLYCERIN) [Concomitant]
  12. FORADIL [Concomitant]
  13. NASONEX [Concomitant]
  14. CEPHALEXIN [Concomitant]

REACTIONS (16)
  - ALLERGIC GRANULOMATOUS ANGIITIS [None]
  - ASTHENIA [None]
  - BLOOD CREATINE PHOSPHOKINASE INCREASED [None]
  - BLOOD FOLATE DECREASED [None]
  - BLOOD SODIUM DECREASED [None]
  - DEEP VEIN THROMBOSIS [None]
  - DEMYELINATION [None]
  - EOSINOPHILIA [None]
  - HYPOAESTHESIA [None]
  - INTERVERTEBRAL DISC PROTRUSION [None]
  - LUMBAR RADICULOPATHY [None]
  - MONONEUROPATHY MULTIPLEX [None]
  - NEUROPATHY [None]
  - SPINAL COLUMN STENOSIS [None]
  - SPINAL OSTEOARTHRITIS [None]
  - VASCULITIS [None]
